FAERS Safety Report 14688437 (Version 1)
Quarter: 2018Q1

REPORT INFORMATION
  Report Type: Spontaneous
  Country: US (occurrence: US)
  Receive Date: 20180328
  Receipt Date: 20180328
  Transmission Date: 20180509
  Serious: Yes (Death, Other)
  Sender: FDA-Public Use
  Company Number: US-B.I. PHARMACEUTICALS,INC./RIDGEFIELD-2018-BI-016882

PATIENT
  Age: 58 Year
  Sex: Male

DRUGS (12)
  1. MORPHINE [Concomitant]
     Active Substance: MORPHINE
     Indication: BACK PAIN
     Route: 048
     Dates: start: 2009
  2. ALBUTEROL SULFATE. [Concomitant]
     Active Substance: ALBUTEROL SULFATE
     Indication: CHRONIC OBSTRUCTIVE PULMONARY DISEASE
     Dosage: FORM STRENGTH: 0.083%
     Route: 055
     Dates: start: 2013
  3. ADVAIR HFA [Concomitant]
     Active Substance: FLUTICASONE PROPIONATE\SALMETEROL XINAFOATE
     Indication: CHRONIC OBSTRUCTIVE PULMONARY DISEASE
     Dosage: FORM STRENGTH: 250/50MCG;
     Route: 048
     Dates: start: 2008
  4. SPIRIVA [Suspect]
     Active Substance: TIOTROPIUM BROMIDE MONOHYDRATE
     Indication: CHRONIC OBSTRUCTIVE PULMONARY DISEASE
     Dosage: ACTION(S) TAKEN WITH PRODUCT: DOSE NOT CHANGED
     Route: 055
     Dates: start: 2011
  5. XANAX [Concomitant]
     Active Substance: ALPRAZOLAM
     Indication: ANXIETY
     Route: 048
     Dates: start: 2010
  6. VICODIN [Concomitant]
     Active Substance: ACETAMINOPHEN\HYDROCODONE BITARTRATE
     Indication: PROCEDURAL PAIN
     Dosage: FORM STRENGTH: 10/325MG; TABLET
     Route: 048
     Dates: start: 2009
  7. PREVAGEN [Concomitant]
     Active Substance: DIETARY SUPPLEMENT
     Indication: MEMORY IMPAIRMENT
     Route: 048
     Dates: start: 201802
  8. FLEXERIL [Concomitant]
     Active Substance: CYCLOBENZAPRINE HYDROCHLORIDE
     Indication: MUSCLE SPASMS
     Route: 048
     Dates: start: 2009
  9. NORVASC [Concomitant]
     Active Substance: AMLODIPINE BESYLATE
     Indication: HYPERTENSION
     Route: 048
     Dates: start: 2005
  10. ASPIRIN. [Concomitant]
     Active Substance: ASPIRIN
     Indication: HYPERTENSION
     Route: 048
  11. CYMBALTA [Concomitant]
     Active Substance: DULOXETINE HYDROCHLORIDE
     Indication: DEPRESSION
     Route: 048
  12. VENTOLIN HFA [Concomitant]
     Active Substance: ALBUTEROL SULFATE
     Indication: CHRONIC OBSTRUCTIVE PULMONARY DISEASE
     Route: 055
     Dates: start: 2010

REACTIONS (5)
  - Respiratory failure [Fatal]
  - Chronic obstructive pulmonary disease [Fatal]
  - Encephalopathy [Unknown]
  - Aspiration [Unknown]
  - Cardiac arrest [Fatal]

NARRATIVE: CASE EVENT DATE: 201803
